FAERS Safety Report 14945990 (Version 1)
Quarter: 2018Q2

REPORT INFORMATION
  Report Type: Spontaneous
  Country: US (occurrence: US)
  Receive Date: 20180529
  Receipt Date: 20180529
  Transmission Date: 20180711
  Serious: Yes (Other)
  Sender: FDA-Public Use
  Company Number: US-BAYER-2018-096239

PATIENT
  Sex: Female

DRUGS (1)
  1. MIRENA [Suspect]
     Active Substance: LEVONORGESTREL
     Dosage: 20 MCG/24HR, CONT
     Route: 015
     Dates: start: 201410

REACTIONS (5)
  - Headache [Unknown]
  - Dizziness [Unknown]
  - Intracranial pressure increased [Unknown]
  - Paraesthesia ear [Unknown]
  - Papilloedema [Unknown]
